FAERS Safety Report 22059188 (Version 1)
Quarter: 2023Q1

REPORT INFORMATION
  Report Type: Spontaneous
  Country: US (occurrence: None)
  Receive Date: 20230302
  Receipt Date: 20230302
  Transmission Date: 20230417
  Serious: Yes (Life-Threatening, Hospitalization, Disabling)
  Sender: FDA-Public Use
  Company Number: None

PATIENT
  Age: 65 Year
  Sex: Male
  Weight: 76.5 kg

DRUGS (8)
  1. RELYVRIO [Suspect]
     Active Substance: SODIUM PHENYLBUTYRATE\TAURURSODIOL
     Indication: Amyotrophic lateral sclerosis
     Dates: start: 20221227, end: 20230106
  2. ALBUTEROL [Concomitant]
     Active Substance: ALBUTEROL
  3. VITAMIN C [Concomitant]
     Active Substance: ASCORBIC ACID
  4. VITAMIN D [Concomitant]
     Active Substance: VITAMIN D NOS
  5. CLARITIN-D NOS [Concomitant]
     Active Substance: LORATADINE\PSEUDOEPHEDRINE SULFATE
  6. VITAMINS [Concomitant]
     Active Substance: VITAMINS
  7. SPIRIVA [Concomitant]
     Active Substance: TIOTROPIUM BROMIDE MONOHYDRATE
  8. VITAMIN B [Concomitant]
     Active Substance: VITAMIN B

REACTIONS (3)
  - Hepatic artery aneurysm [None]
  - Hepatic artery thrombosis [None]
  - Artery dissection [None]

NARRATIVE: CASE EVENT DATE: 20230220
